FAERS Safety Report 8548705-5 (Version None)
Quarter: 2012Q3

REPORT INFORMATION
  Report Type: 
  Country: None (occurrence: None)
  Receive Date: 20120730
  Receipt Date: 20120720
  Transmission Date: 20120928
  Serious: Yes (Hospitalization, Other)
  Sender: FDA-Public Use
  Company Number: PHEH2012US009060

PATIENT
  Sex: Female

DRUGS (21)
  1. REVLIMID [Concomitant]
     Dosage: 5 MG, QOD
     Dates: start: 20090114
  2. REVLIMID [Concomitant]
     Dosage: 5 MG 2 OUT OF 3 DAYS
  3. AZACITIDINE [Concomitant]
     Dosage: UNK UKN, UNK
     Dates: start: 20100614, end: 20101005
  4. FLONASE [Concomitant]
  5. POTASSIUM CHLORIDE [Concomitant]
  6. ACYCLOVIR [Concomitant]
  7. LEVOTHYROXINE SODIUM [Concomitant]
  8. M.V.I. [Concomitant]
  9. VYTORIN [Concomitant]
  10. DESFERAL [Suspect]
     Dosage: 1500 MG
  11. REVLIMID [Concomitant]
     Dosage: 5 MG, DAILY
     Dates: start: 20090929, end: 20100513
  12. METOPROLOL TARTRATE [Concomitant]
  13. PRILOSEC [Concomitant]
  14. CLOBETASOL PROPIONATE [Concomitant]
  15. CYANOCOBALAMIN [Concomitant]
  16. FUROSEMIDE [Concomitant]
  17. REVLIMID [Concomitant]
     Dosage: 5 MG, DAILY
     Dates: start: 20090331
  18. REVLIMID [Concomitant]
     Dosage: 5 MG, QOD
  19. VIDAZA [Concomitant]
     Dosage: UNK UKN, UNK
     Dates: end: 20101004
  20. DECADRON [Concomitant]
  21. ZOVIRAX [Concomitant]

REACTIONS (18)
  - ANAEMIA [None]
  - IRON OVERLOAD [None]
  - DYSPNOEA [None]
  - THROMBOCYTOPENIA [None]
  - URINARY TRACT INFECTION [None]
  - CHEILITIS [None]
  - TREMOR [None]
  - RENAL FAILURE [None]
  - HAEMORRHAGE [None]
  - OEDEMA PERIPHERAL [None]
  - CHILLS [None]
  - NEUTROPENIA [None]
  - HERPES SIMPLEX [None]
  - ASTHENIA [None]
  - HAEMATEMESIS [None]
  - RASH MACULO-PAPULAR [None]
  - TRANSFUSION REACTION [None]
  - NAUSEA [None]
